FAERS Safety Report 10175568 (Version 1)
Quarter: 2014Q2

REPORT INFORMATION
  Report Type: Spontaneous
  Country: US (occurrence: US)
  Receive Date: 20140516
  Receipt Date: 20140516
  Transmission Date: 20141212
  Serious: No
  Sender: FDA-Public Use
  Company Number: US-009507513-1405USA007192

PATIENT
  Age: 14 Year
  Sex: Male
  Weight: 68.27 kg

DRUGS (1)
  1. CLARITIN [Suspect]
     Indication: PRODUCT USED FOR UNKNOWN INDICATION
     Dosage: 6 HOURS BEFORE I WAS SUPPOSE TO THIS MORNING
     Route: 048
     Dates: start: 20140512

REACTIONS (1)
  - Accidental overdose [Unknown]
